FAERS Safety Report 6954020-3 (Version None)
Quarter: 2010Q3

REPORT INFORMATION
  Report Type: 
  Country: None (occurrence: None)
  Receive Date: 20100829
  Receipt Date: 20100629
  Transmission Date: 20110219
  Serious: No
  Sender: FDA-Public Use
  Company Number: US-ABBOTT-10P-163-0655175-00

PATIENT
  Sex: Female

DRUGS (16)
  1. NIASPAN [Suspect]
     Indication: HIGH DENSITY LIPOPROTEIN DECREASED
     Dates: start: 20100625, end: 20100628
  2. SYNTHROID [Concomitant]
     Indication: HYPOTHYROIDISM
  3. POTASSIUM [Concomitant]
     Indication: BLOOD POTASSIUM DECREASED
  4. HYDROCHLOROTHIAZIDE [Concomitant]
     Indication: JOINT SWELLING
  5. HYZAAR/HCTZ [Concomitant]
     Indication: HYPERTENSION
     Dosage: 100/25 MG:TAKES 1/2 TABLET
  6. IMDUR [Concomitant]
     Indication: PRODUCT USED FOR UNKNOWN INDICATION
  7. TOPROL-XL [Concomitant]
     Indication: HYPERTENSION
  8. LIPITOR [Concomitant]
     Indication: PRODUCT USED FOR UNKNOWN INDICATION
  9. ASPIRIN [Concomitant]
     Indication: PRODUCT USED FOR UNKNOWN INDICATION
     Dates: start: 20050101
  10. ASPIRIN [Concomitant]
  11. PLAVIX [Concomitant]
     Indication: PRODUCT USED FOR UNKNOWN INDICATION
  12. LOVAZA [Concomitant]
     Indication: PRODUCT USED FOR UNKNOWN INDICATION
  13. CALCIUM [Concomitant]
     Indication: PRODUCT USED FOR UNKNOWN INDICATION
  14. MULTI-VITAMIN [Concomitant]
     Indication: PRODUCT USED FOR UNKNOWN INDICATION
  15. PROVENTIL GENTLEHALER [Concomitant]
     Indication: ASTHMA
  16. NASACORT [Concomitant]
     Indication: ASTHMA

REACTIONS (5)
  - DIARRHOEA [None]
  - DIZZINESS [None]
  - HEADACHE [None]
  - PARAESTHESIA [None]
  - SENSORY DISTURBANCE [None]
